FAERS Safety Report 9384654 (Version 1)
Quarter: 2013Q3

REPORT INFORMATION
  Report Type: Spontaneous
  Country: FR (occurrence: FR)
  Receive Date: 20130705
  Receipt Date: 20130705
  Transmission Date: 20140515
  Serious: Yes (Hospitalization)
  Sender: FDA-Public Use
  Company Number: FR-PFIZER INC-2013196317

PATIENT
  Age: 85 Year
  Sex: Female

DRUGS (7)
  1. ALDACTONE [Suspect]
     Indication: HYPERTENSION
     Dosage: 1 DF, 1X/DAY
     Route: 048
     Dates: end: 20130529
  2. CRESTOR [Suspect]
     Indication: CARDIOVASCULAR EVENT PROPHYLAXIS
     Dosage: 5 MG, 1X/DAY
     Route: 048
     Dates: end: 20130529
  3. ADENURIC [Suspect]
     Dosage: 80 MG, 1X/DAY
     Route: 048
     Dates: end: 20130529
  4. ODRIK [Suspect]
     Indication: HYPERTENSION
     Dosage: 4 MG, 1X/DAY
     Route: 048
     Dates: end: 20130529
  5. DIFFU K [Concomitant]
  6. LEVOTHYROX [Concomitant]
  7. KARDEGIC [Concomitant]

REACTIONS (2)
  - Renal failure acute [Not Recovered/Not Resolved]
  - Pancreatitis acute [Recovering/Resolving]
